FAERS Safety Report 8948157 (Version 1)
Quarter: 2012Q4

REPORT INFORMATION
  Report Type: 
  Country: US (occurrence: US)
  Receive Date: 20121204
  Receipt Date: 20121204
  Transmission Date: 20130627
  Serious: No
  Sender: FDA-Public Use
  Company Number: US-PFIZER INC-2012299812

PATIENT
  Age: 80 Year
  Sex: Male
  Weight: 51.7 kg

DRUGS (5)
  1. RIFABUTIN [Suspect]
     Indication: PNEUMONIA
     Dosage: two capsules of 150mg once a day on alternate days
     Route: 048
     Dates: start: 2012
  2. FAMOTIDINE [Interacting]
     Indication: HYPERCHLORHYDRIA
     Dosage: 20 mg, 1x/day
     Route: 048
     Dates: start: 2012
  3. NIFEDIPINE [Concomitant]
     Indication: BLOOD PRESSURE HIGH
     Dosage: UNK
  4. ETHAMBUTOL [Concomitant]
     Dosage: UNK
  5. AZITHROMYCIN [Concomitant]
     Dosage: UNK

REACTIONS (2)
  - Hyperchlorhydria [Unknown]
  - Drug interaction [Unknown]
